FAERS Safety Report 4843592-0 (Version None)
Quarter: 2005Q4

REPORT INFORMATION
  Report Type: 
  Country: None (occurrence: None)
  Receive Date: 20051202
  Receipt Date: 20010205
  Transmission Date: 20060501
  Serious: Yes (Life-Threatening, Other)
  Sender: FDA-Public Use
  Company Number: FR-AVENTIS-200111087FR

PATIENT
  Sex: Male
  Weight: 80 kg

DRUGS (4)
  1. TAXOTERE [Suspect]
     Indication: LUNG NEOPLASM MALIGNANT
     Route: 042
     Dates: start: 20010110, end: 20010110
  2. DAFALGAN [Concomitant]
     Indication: PAIN
     Route: 048
     Dates: start: 20001201
  3. AVLOCARDYL [Concomitant]
     Indication: CARDIAC DISORDER
     Route: 048
     Dates: start: 20001101
  4. CORDARONE [Concomitant]
     Indication: CARDIAC DISORDER
     Route: 048
     Dates: start: 20001101

REACTIONS (7)
  - ABDOMINAL PAIN [None]
  - DYSPNOEA [None]
  - ERYTHEMA [None]
  - HOT FLUSH [None]
  - HYPERSENSITIVITY [None]
  - PARAESTHESIA [None]
  - PHOSPHENES [None]
